FAERS Safety Report 5091712-8 (Version None)
Quarter: 2006Q3

REPORT INFORMATION
  Report Type: 
  Country: None (occurrence: None)
  Receive Date: 20060824
  Receipt Date: 20060809
  Transmission Date: 20061208
  Serious: Yes (Hospitalization)
  Sender: FDA-Public Use
  Company Number: 228830

PATIENT
  Age: 39 Year
  Sex: Male

DRUGS (6)
  1. AVASTIN [Suspect]
     Indication: COLORECTAL CANCER
     Dosage: 622 MG, Q3W, INTRAVENOUS
     Route: 042
     Dates: start: 20060202
  2. CAPECITABINE (CAPECITABINE) [Suspect]
     Indication: COLORECTAL CANCER
     Dosage: 2500 MG, BID, ORAL
     Route: 048
     Dates: start: 20060201
  3. OXALIPLATIN [Suspect]
     Indication: COLORECTAL CANCER
     Dosage: 280 MG, Q3W, INTRAVENOUS
     Route: 042
     Dates: start: 20060201
  4. ERBITUX [Suspect]
     Indication: COLORECTAL CANCER
     Dosage: 532 MG, 1/WEEK, INTRAVENOUS
     Route: 042
     Dates: start: 20060201
  5. FRAXODI (NADROPARIN CALCIUM) [Concomitant]
  6. DOXYCYCLINE [Concomitant]

REACTIONS (3)
  - ABNORMAL BEHAVIOUR [None]
  - HEADACHE [None]
  - PYREXIA [None]
